FAERS Safety Report 14700391 (Version 3)
Quarter: 2018Q2

REPORT INFORMATION
  Report Type: Report from Study
  Country: RO (occurrence: RO)
  Receive Date: 20180330
  Receipt Date: 20180504
  Transmission Date: 20180711
  Serious: Yes (Hospitalization)
  Sender: FDA-Public Use
  Company Number: RO-GILEAD-2018-0328996

PATIENT
  Age: 60 Year
  Sex: Female

DRUGS (13)
  1. DIUREX                             /00022001/ [Concomitant]
  2. FOLIC ACID. [Concomitant]
     Active Substance: FOLIC ACID
  3. VITAMINS                           /00067501/ [Concomitant]
     Active Substance: VITAMINS
  4. SORBIFER                           /00023503/ [Concomitant]
     Active Substance: FERROUS SULFATE
  5. FITODIAB [Concomitant]
  6. LEDIPASVIR/SOFOSBUVIR [Suspect]
     Active Substance: LEDIPASVIR\SOFOSBUVIR
     Indication: HEPATIC CIRRHOSIS
  7. LEDIPASVIR/SOFOSBUVIR [Suspect]
     Active Substance: LEDIPASVIR\SOFOSBUVIR
     Indication: HEPATITIS C
     Dosage: 1 DF, QD
     Route: 048
     Dates: start: 20180224
  8. PROPANOLOL                         /00030001/ [Concomitant]
     Active Substance: PROPRANOLOL HYDROCHLORIDE
  9. OMEZ                               /00661201/ [Concomitant]
     Active Substance: OMEPRAZOLE
  10. URSOFALK [Concomitant]
     Active Substance: URSODIOL
  11. METOPROLOL. [Concomitant]
     Active Substance: METOPROLOL
  12. LAGOSA [Concomitant]
  13. NORMIX [Concomitant]
     Active Substance: RIFAXIMIN

REACTIONS (3)
  - Blood bilirubin decreased [Not Recovered/Not Resolved]
  - Haemoglobin decreased [Not Recovered/Not Resolved]
  - Platelet count decreased [Not Recovered/Not Resolved]

NARRATIVE: CASE EVENT DATE: 20180315
